FAERS Safety Report 5345549-2 (Version None)
Quarter: 2007Q2

REPORT INFORMATION
  Report Type: 
  Country: None (occurrence: None)
  Receive Date: 20070601
  Receipt Date: 20070601
  Transmission Date: 20071010
  Serious: Yes (Death)
  Sender: FDA-Public Use
  Company Number: None

PATIENT
  Sex: Female
  Weight: 96 kg

DRUGS (2)
  1. TNKASE [Suspect]
     Indication: MYOCARDIAL INFARCTION
     Dosage: 50MG X1 IV
     Route: 042
  2. HEPARIN [Suspect]
     Dosage: DRIP

REACTIONS (1)
  - CEREBRAL HAEMORRHAGE [None]
